FAERS Safety Report 7613737-8 (Version None)
Quarter: 2011Q3

REPORT INFORMATION
  Report Type: 
  Country: None (occurrence: None)
  Receive Date: 20110708
  Receipt Date: 20110615
  Transmission Date: 20111222
  Serious: Yes (Hospitalization)
  Sender: FDA-Public Use
  Company Number: M1102836

PATIENT
  Age: 92 Year
  Sex: Female

DRUGS (8)
  1. VITAMIN D [Concomitant]
  2. HYDROCHLOROTHIAZIDE [Concomitant]
  3. COUMADIN [Concomitant]
  4. LOSARTAN POTASSIUM [Concomitant]
  5. METOPROLOL TARTRATE [Concomitant]
  6. MAGNESIUM TAURATE (MAGNESIUM) [Concomitant]
  7. FOLGARD RX TABLETS (PYRIDOXINE HYDROCHLORIDE, FOLIC ACID, VITAMIN  B12 [Suspect]
     Indication: PRODUCT USED FOR UNKNOWN INDICATION
     Dosage: 1 IN 1 D, ORAL
     Route: 048
  8. SIMVASTATIN (SIMVATATIN) [Concomitant]

REACTIONS (2)
  - PLATELET COUNT DECREASED [None]
  - ANAEMIA [None]
